FAERS Safety Report 8525327 (Version 6)
Quarter: 2013Q1

REPORT INFORMATION
  Report Type: Spontaneous
  Country: None (occurrence: None)
  Receive Date: 20120416
  Receipt Date: 20130329
  Transmission Date: 20140127
  Serious: Yes (Other)
  Sender: FDA-Public Use
  Company Number: AUR-APL-2012-01664

PATIENT
  Age: 38 Year
  Sex: Male
  Weight: 130 kg

DRUGS (4)
  1. MIRTAZAPINE [Suspect]
     Indication: ANXIETY
     Route: 048
     Dates: start: 20120104, end: 20120116
  2. MIRTAZAPINE [Suspect]
     Indication: DEPRESSED MOOD
     Route: 048
     Dates: start: 20120104, end: 20120116
  3. FLUOXETINE [Suspect]
     Indication: DEPRESSED MOOD
     Dates: start: 20080808, end: 20120104
  4. FLUOXETINE [Suspect]
     Indication: ANXIETY
     Dates: start: 20080808, end: 20120104

REACTIONS (9)
  - Confusional state [None]
  - Irritability [None]
  - Paranoia [None]
  - Psychotic disorder [None]
  - Depressed mood [None]
  - Suicidal ideation [None]
  - Anxiety [None]
  - Cognitive disorder [None]
  - Drug ineffective [None]
